FAERS Safety Report 7952434-6 (Version None)
Quarter: 2011Q4

REPORT INFORMATION
  Report Type: 
  Country: None (occurrence: None)
  Receive Date: 20111201
  Receipt Date: 20111122
  Transmission Date: 20120403
  Serious: Yes (Hospitalization, Other)
  Sender: FDA-Public Use
  Company Number: FR-GLAXOSMITHKLINE-B0758199A

PATIENT
  Sex: Female
  Weight: 67 kg

DRUGS (1)
  1. ARIXTRA [Suspect]
     Indication: THROMBOPHLEBITIS SUPERFICIAL
     Dosage: 2.5MG PER DAY
     Route: 058

REACTIONS (2)
  - HAEMATOMA [None]
  - COMPARTMENT SYNDROME [None]
